FAERS Safety Report 4811106-7 (Version None)
Quarter: 2005Q4

REPORT INFORMATION
  Report Type: 
  Country: None (occurrence: None)
  Receive Date: 20051027
  Receipt Date: 20051007
  Transmission Date: 20060501
  Serious: Yes (Hospitalization)
  Sender: FDA-Public Use
  Company Number: 2005UW15241

PATIENT
  Age: 66 Year
  Sex: Female

DRUGS (4)
  1. BRICANYL [Suspect]
     Indication: ASTHMA
     Route: 055
  2. SPIROCORT [Suspect]
     Indication: ASTHMA
     Route: 055
     Dates: start: 20000307
  3. LOTRIAL [Suspect]
     Indication: HYPERTENSION
     Route: 048
  4. BEROTEC [Concomitant]
     Indication: ASTHMA

REACTIONS (2)
  - ASTHMA [None]
  - SPUTUM PURULENT [None]
